FAERS Safety Report 13843639 (Version 2)
Quarter: 2017Q4

REPORT INFORMATION
  Report Type: Spontaneous
  Country: US (occurrence: US)
  Receive Date: 20170808
  Receipt Date: 20171005
  Transmission Date: 20180320
  Serious: Yes (Other)
  Sender: FDA-Public Use
  Company Number: US-ELI_LILLY_AND_COMPANY-US201707012160

PATIENT
  Sex: Male

DRUGS (1)
  1. BASAGLAR [Suspect]
     Active Substance: INSULIN GLARGINE
     Indication: DIABETES MELLITUS
     Dosage: 45 IU, EACH EVENING
     Route: 058
     Dates: start: 20170706

REACTIONS (4)
  - Blood glucose increased [Unknown]
  - Headache [Unknown]
  - Loss of consciousness [Unknown]
  - Vomiting [Unknown]
